FAERS Safety Report 8154880-7 (Version None)
Quarter: 2012Q1

REPORT INFORMATION
  Report Type: 
  Country: None (occurrence: None)
  Receive Date: 20120221
  Receipt Date: 20120215
  Transmission Date: 20120608
  Serious: Yes (Death)
  Sender: FDA-Public Use
  Company Number: PHEH2012US002896

PATIENT
  Sex: Male

DRUGS (6)
  1. GABAPENTIN [Concomitant]
     Dosage: 600 MG, BID
  2. CENTRUM [Concomitant]
  3. VITAMIN E [Concomitant]
     Dosage: 400 IU, QD
  4. ZOCOR [Concomitant]
  5. NIASPAN [Concomitant]
  6. FANAPT [Suspect]
     Dosage: 2 DF, BID
     Dates: start: 20111101

REACTIONS (2)
  - SUDDEN DEATH [None]
  - MALAISE [None]
